FAERS Safety Report 26032191 (Version 1)
Quarter: 2025Q4

REPORT INFORMATION
  Report Type: Report from Study
  Country: US (occurrence: US)
  Receive Date: 20251112
  Receipt Date: 20251112
  Transmission Date: 20260117
  Serious: No
  Sender: SANDOZ
  Company Number: US-SANDOZ-SDZ2025US084121

PATIENT
  Sex: Female

DRUGS (2)
  1. OMNITROPE [Suspect]
     Active Substance: SOMATROPIN
     Indication: Short stature
     Dosage: 0.22 ML, SIX DAYS A WEEK (STRENGTH 5 MG/ML)
     Route: 058
  2. OMNITROPE [Suspect]
     Active Substance: SOMATROPIN
     Indication: Short stature
     Dosage: 0.22 ML, SIX DAYS A WEEK (STRENGTH 5 MG/ML)
     Route: 058

REACTIONS (4)
  - Injection site bruising [Unknown]
  - Injection site pain [Unknown]
  - Product dose omission issue [Unknown]
  - Refusal of treatment by patient [Unknown]
